FAERS Safety Report 13711782 (Version 4)
Quarter: 2017Q3

REPORT INFORMATION
  Report Type: Report from Study
  Country: JP (occurrence: JP)
  Receive Date: 20170703
  Receipt Date: 20170830
  Transmission Date: 20171127
  Serious: Yes (Other)
  Sender: FDA-Public Use
  Company Number: JP-GILEAD-2017-0279679

PATIENT
  Age: 36 Year
  Sex: Male
  Weight: 75.6 kg

DRUGS (6)
  1. TENOFOVIR ALAFENAMIDE [Suspect]
     Active Substance: TENOFOVIR ALAFENAMIDE
     Dosage: 1 DF, QD
     Route: 048
     Dates: start: 20140626, end: 20170328
  2. EBASTINE [Concomitant]
     Active Substance: EBASTINE
     Indication: SEASONAL ALLERGY
     Dosage: 10 MG, UNK
     Route: 048
     Dates: start: 20170325, end: 20170420
  3. REBAMIPIDE [Concomitant]
     Active Substance: REBAMIPIDE
     Indication: PROPHYLAXIS AGAINST GASTROINTESTINAL ULCER
     Dosage: 200 MG, UNK
     Route: 048
     Dates: start: 20170401
  4. URSODEOXYCHOLIC ACID [Concomitant]
     Active Substance: URSODIOL
     Indication: HEPATITIS B
     Dosage: 600 MG, UNK
     Route: 048
     Dates: start: 20090708
  5. GLYCYRON                           /00467202/ [Concomitant]
     Indication: HEPATITIS B
     Dosage: UNK
     Route: 048
     Dates: start: 20101001
  6. TENOFOVIR ALAFENAMIDE [Suspect]
     Active Substance: TENOFOVIR ALAFENAMIDE
     Indication: CHRONIC HEPATITIS B
     Dosage: 25 MG, QD
     Route: 048
     Dates: start: 20170329, end: 20170622

REACTIONS (1)
  - Osteonecrosis [Not Recovered/Not Resolved]

NARRATIVE: CASE EVENT DATE: 20170401
